FAERS Safety Report 23573457 (Version 3)
Quarter: 2024Q2

REPORT INFORMATION
  Report Type: Spontaneous
  Country: JP (occurrence: JP)
  Receive Date: 20240228
  Receipt Date: 20240425
  Transmission Date: 20240715
  Serious: Yes (Hospitalization)
  Sender: FDA-Public Use
  Company Number: JP-002147023-NVSJ2024JP002542

PATIENT
  Age: 11 Year
  Sex: Female
  Weight: 34.5 kg

DRUGS (1)
  1. ILARIS [Suspect]
     Active Substance: CANAKINUMAB
     Indication: Still^s disease
     Dosage: UNK
     Route: 058

REACTIONS (24)
  - Acute hepatic failure [Recovering/Resolving]
  - Flank pain [Unknown]
  - Malaise [Unknown]
  - Ocular icterus [Unknown]
  - Hepatic enzyme increased [Unknown]
  - Hepatitis acute [Recovering/Resolving]
  - Jaundice [Unknown]
  - Inflammation [Unknown]
  - Hepatic enzyme abnormal [Unknown]
  - Periportal oedema [Unknown]
  - Gallbladder enlargement [Unknown]
  - Hepatic necrosis [Unknown]
  - Hepatocellular injury [Unknown]
  - Hepatic cirrhosis [Unknown]
  - Haemophagocytic lymphohistiocytosis [Recovering/Resolving]
  - Body temperature increased [Unknown]
  - Platelet count decreased [Unknown]
  - Oedema [Unknown]
  - Pancytopenia [Unknown]
  - Coagulopathy [Unknown]
  - C-reactive protein increased [Unknown]
  - Serum ferritin increased [Unknown]
  - Alanine aminotransferase increased [Unknown]
  - Blood bilirubin increased [Unknown]
